FAERS Safety Report 18693959 (Version 1)
Quarter: 2020Q4

REPORT INFORMATION
  Report Type: Spontaneous
  Country: US (occurrence: US)
  Receive Date: 20201231
  Receipt Date: 20201231
  Transmission Date: 20210114
  Serious: Yes (Hospitalization)
  Sender: FDA-Public Use
  Company Number: None

PATIENT
  Age: 52 Year
  Sex: Female
  Weight: 77 kg

DRUGS (1)
  1. BAMLANIVIMAB. [Suspect]
     Active Substance: BAMLANIVIMAB
     Indication: COVID-19
     Route: 042
     Dates: start: 20201228, end: 20201228

REACTIONS (5)
  - Dizziness [None]
  - Hypertension [None]
  - Hypoaesthesia [None]
  - Tachycardia [None]
  - Paraesthesia [None]

NARRATIVE: CASE EVENT DATE: 20201228
